FAERS Safety Report 6542854-9 (Version None)
Quarter: 2010Q1

REPORT INFORMATION
  Report Type: 
  Country: None (occurrence: None)
  Receive Date: 20100120
  Receipt Date: 20100108
  Transmission Date: 20100710
  Serious: Yes (Other)
  Sender: FDA-Public Use
  Company Number: US-BIOGENIDEC-2009BI041032

PATIENT
  Age: 26 Year
  Sex: Female
  Weight: 118 kg

DRUGS (4)
  1. TYSABRI [Suspect]
     Indication: MULTIPLE SCLEROSIS
     Route: 042
     Dates: start: 20091001
  2. BACLOFEN [Concomitant]
  3. NEURONTIN [Concomitant]
  4. ANTIVERT [Concomitant]

REACTIONS (1)
  - AUTOIMMUNE HEPATITIS [None]
